FAERS Safety Report 6717136-2 (Version None)
Quarter: 2010Q2

REPORT INFORMATION
  Report Type: 
  Country: None (occurrence: None)
  Receive Date: 20100510
  Receipt Date: 20100430
  Transmission Date: 20101027
  Serious: Yes (Disabling)
  Sender: FDA-Public Use
  Company Number: CN-BRISTOL-MYERS SQUIBB COMPANY-15095276

PATIENT
  Age: 16 Year
  Sex: Male

DRUGS (1)
  1. ABILIFY [Suspect]
     Indication: SCHIZOPHRENIA
     Dosage: 16FEB-01JUN09:5MG,106D 02JUN-21AUG09:10MG,81D 22AUG09-UNK:15MG
     Route: 048
     Dates: start: 20090216

REACTIONS (1)
  - HEPATIC FIBROSIS [None]
